FAERS Safety Report 12441048 (Version 1)
Quarter: 2016Q2

REPORT INFORMATION
  Report Type: Spontaneous
  Country: US (occurrence: US)
  Receive Date: 20160607
  Receipt Date: 20160607
  Transmission Date: 20160815
  Serious: No
  Sender: FDA-Public Use
  Company Number: US-ASTRAZENECA-2016SE40512

PATIENT
  Age: 850 Month
  Sex: Female
  Weight: 54.4 kg

DRUGS (4)
  1. FORADIL [Concomitant]
     Active Substance: FORMOTEROL FUMARATE
  2. IMITREX [Concomitant]
     Active Substance: SUMATRIPTAN SUCCINATE
     Indication: MIGRAINE
     Dosage: 150.0MG AS REQUIRED
  3. FLOVENT [Concomitant]
     Active Substance: FLUTICASONE PROPIONATE
     Indication: ASTHMA
  4. FORACORT [Suspect]
     Active Substance: BUDESONIDE\FORMOTEROL FUMARATE
     Indication: ASTHMA
     Dosage: 200, 2 PUFFS TWO TIMES  A DAY
     Route: 055
     Dates: start: 20160401

REACTIONS (16)
  - Body height decreased [Unknown]
  - Feeling abnormal [Unknown]
  - Swollen tongue [Unknown]
  - Somnolence [Unknown]
  - Swelling face [Unknown]
  - Weight decreased [Unknown]
  - Malaise [Unknown]
  - Nausea [Unknown]
  - Peripheral swelling [Unknown]
  - Mouth swelling [Unknown]
  - Vomiting [Unknown]
  - Adverse drug reaction [Unknown]
  - Headache [Unknown]
  - Candida infection [Unknown]
  - Rash [Unknown]
  - Migraine [Unknown]

NARRATIVE: CASE EVENT DATE: 201604
